FAERS Safety Report 5269922-6 (Version None)
Quarter: 2007Q1

REPORT INFORMATION
  Report Type: 
  Country: None (occurrence: None)
  Receive Date: 20070314
  Receipt Date: 20070227
  Transmission Date: 20070707
  Serious: Yes (Death)
  Sender: FDA-Public Use
  Company Number: 2007000383

PATIENT
  Age: 52 Year
  Sex: Male

DRUGS (1)
  1. TARCEVA [Suspect]
     Indication: BRAIN NEOPLASM MALIGNANT
     Dosage: 150 MG (QD), ORAL
     Route: 048
     Dates: start: 20061122

REACTIONS (1)
  - DEATH [None]
